FAERS Safety Report 8467034-1 (Version None)
Quarter: 2012Q2

REPORT INFORMATION
  Report Type: 
  Country: None (occurrence: None)
  Receive Date: 20120619
  Receipt Date: 20120608
  Transmission Date: 20120825
  Serious: No
  Sender: FDA-Public Use
  Company Number: 120243

PATIENT
  Sex: Female

DRUGS (1)
  1. GOLYTELY [Suspect]
     Indication: PRODUCT USED FOR UNKNOWN INDICATION
     Dosage: UNK

REACTIONS (3)
  - ASTHMA [None]
  - BLOOD PRESSURE DECREASED [None]
  - HYPERHIDROSIS [None]
